FAERS Safety Report 8846949 (Version 1)
Quarter: 2012Q4

REPORT INFORMATION
  Report Type: Spontaneous
  Country: US (occurrence: None)
  Receive Date: 20121016
  Receipt Date: 20121016
  Transmission Date: 20130627
  Serious: Yes (Hospitalization)
  Sender: FDA-Public Use
  Company Number: 001380686A

PATIENT
  Age: 10 Year
  Sex: Female

DRUGS (3)
  1. MEANINGFUL BEAUTY CINDY CRAWFORD ANTIOXIDANT SPF 20 UVA/UVB [Suspect]
     Dosage: once daily dermal
     Dates: start: 20120720, end: 20120820
  2. MEANINGFUL BEAUTY CINDY CRAWFORD SKIN BRIGHTENING DECOLLETE AND NECK TREATMENT SPF 15 [Suspect]
     Dosage: once daily dermal
     Dates: start: 20120720, end: 20120820
  3. ADHD MEDICATION [Concomitant]

REACTIONS (5)
  - Eye swelling [None]
  - Lip swelling [None]
  - Swollen tongue [None]
  - Aphasia [None]
  - Obstructive airways disorder [None]
